FAERS Safety Report 6715351-5 (Version None)
Quarter: 2010Q2

REPORT INFORMATION
  Report Type: 
  Country: None (occurrence: None)
  Receive Date: 20100507
  Receipt Date: 20100428
  Transmission Date: 20101027
  Serious: Yes (Hospitalization)
  Sender: FDA-Public Use
  Company Number: US-ASTRAZENECA-2010SE15402

PATIENT
  Age: 35 Year
  Sex: Male
  Weight: 98 kg

DRUGS (5)
  1. CRESTOR [Suspect]
     Indication: HYPERLIPIDAEMIA
     Route: 048
     Dates: start: 20090807, end: 20100405
  2. PROTONICS [Concomitant]
     Indication: GASTROOESOPHAGEAL REFLUX DISEASE
     Dates: start: 20100322
  3. WELLBUTRIN [Concomitant]
     Indication: DEPRESSION
     Dates: start: 20100408
  4. ALLEGRA [Concomitant]
     Indication: SEASONAL ALLERGY
     Dates: start: 20090806
  5. MULTI-VITAMIN [Concomitant]

REACTIONS (4)
  - HEPATITIS ACUTE [None]
  - HYPOKALAEMIA [None]
  - OEDEMA PERIPHERAL [None]
  - RHABDOMYOLYSIS [None]
